FAERS Safety Report 9198371 (Version 1)
Quarter: 2013Q1

REPORT INFORMATION
  Report Type: Spontaneous
  Country: US (occurrence: None)
  Receive Date: 20120709
  Receipt Date: 20120709
  Transmission Date: 20140127
  Serious: Yes (Other)
  Sender: FDA-Public Use
  Company Number: PHEH2012US007592

PATIENT
  Age: 69 Year
  Sex: Female

DRUGS (1)
  1. GLEEVEC (IMATINIB) UNKNOWN [Suspect]
     Indication: CHRONIC MYELOID LEUKAEMIA
     Route: 048
     Dates: start: 20120329

REACTIONS (5)
  - Pruritus [None]
  - Lip swelling [None]
  - Eyelid oedema [None]
  - Oedema peripheral [None]
  - Auricular swelling [None]
